FAERS Safety Report 6694058-7 (Version None)
Quarter: 2010Q2

REPORT INFORMATION
  Report Type: 
  Country: None (occurrence: None)
  Receive Date: 20100423
  Receipt Date: 20100412
  Transmission Date: 20101027
  Serious: Yes (Other)
  Sender: FDA-Public Use
  Company Number: TW-PFIZER INC-2010045854

PATIENT
  Age: 29 Year
  Sex: Female

DRUGS (7)
  1. DOSTINEX [Suspect]
     Dosage: 0.5 MG/DAY
  2. PREGNYL [Concomitant]
     Dosage: 5000 IU, UNK
  3. GONAL-F [Concomitant]
     Dosage: 150 IU, UNK
  4. GONAL-F [Concomitant]
     Dosage: 112.5 IU, UNK
  5. GONAL-F [Concomitant]
     Dosage: 75 IU, UNK
  6. GONAL-F [Concomitant]
     Dosage: UNK
  7. BUSERELIN [Concomitant]
     Dosage: 0.5 MG/DAY

REACTIONS (1)
  - OVARIAN HYPERSTIMULATION SYNDROME [None]
